FAERS Safety Report 16542326 (Version 1)
Quarter: 2019Q3

REPORT INFORMATION
  Report Type: Spontaneous
  Country: DK (occurrence: DK)
  Receive Date: 20190708
  Receipt Date: 20190708
  Transmission Date: 20191004
  Serious: Yes (Life-Threatening)
  Sender: FDA-Public Use
  Company Number: PHHY2019DK155663

PATIENT
  Age: 77 Year
  Sex: Female

DRUGS (10)
  1. OMEPRAZOL ACTAVIS [Concomitant]
     Active Substance: OMEPRAZOLE
     Indication: GASTROOESOPHAGEAL REFLUX DISEASE
     Dosage: 20 MG, QD (STYRKE: 20 MG.)
     Route: 048
     Dates: start: 20120402
  2. MABLET [Concomitant]
     Indication: MAGNESIUM DEFICIENCY
     Dosage: 1 DF, QD (STYRKE: UKENDT.)
     Route: 048
     Dates: start: 20190326
  3. LAMOTRIGIN 1A FARMA [Concomitant]
     Indication: EPILEPSY
     Dosage: STYRKE: 50 MG. DOSIS: 1 TABLET MORGEN, 3 TABLETTER AFTEN.
     Route: 048
  4. ACLASTA [Suspect]
     Active Substance: ZOLEDRONIC ACID
     Indication: OSTEOPOROSIS
     Dosage: 5 MG, Q12MO (STYRKE: 5 MG/100 ML.)
     Route: 042
     Dates: start: 20190605, end: 20190605
  5. BETOLVEX [Concomitant]
     Active Substance: CYANOCOBALAMIN
     Indication: VITAMIN B12 DEFICIENCY
     Dosage: 1 MG, QD (STYRKE: 1 MG)
     Route: 048
     Dates: start: 20180306
  6. SERETIDE [Concomitant]
     Active Substance: FLUTICASONE PROPIONATE\SALMETEROL XINAFOATE
     Indication: CHRONIC OBSTRUCTIVE PULMONARY DISEASE
     Dosage: 4 DF, QD ((STYRKE: 25+250 MIKROG./DOSIS.)
     Route: 055
     Dates: start: 20170420
  7. ATORVASTATIN KRKA [Concomitant]
     Active Substance: ATORVASTATIN
     Indication: HYPERCHOLESTEROLAEMIA
     Dosage: 80 MG, QD (STYRKE: 80 MG)
     Route: 048
     Dates: start: 20150129
  8. PINEX [Concomitant]
     Indication: PAIN
     Dosage: 1000 MG, UNK (STYRKE: 500 MG. DOSIS: 2 TABLETTER PN., H?JST 8 TABLETTER DAGLIGT)
     Route: 048
     Dates: start: 20140802
  9. VENTOLINE [Concomitant]
     Active Substance: ALBUTEROL
     Indication: BRONCHOSPASM
     Dosage: 1 DF, QD (STYRKE: 0,2 MG/DOSIS)
     Route: 055
     Dates: start: 20190405
  10. SPIRIVA [Concomitant]
     Active Substance: TIOTROPIUM BROMIDE MONOHYDRATE
     Indication: CHRONIC OBSTRUCTIVE PULMONARY DISEASE
     Dosage: 2 DF, QD (STYRKE: 2,5 MIKROGRAM)
     Route: 055
     Dates: start: 20190204

REACTIONS (2)
  - Acute kidney injury [Recovering/Resolving]
  - Acidosis [Recovering/Resolving]

NARRATIVE: CASE EVENT DATE: 20190605
